FAERS Safety Report 5734025-0 (Version None)
Quarter: 2008Q2

REPORT INFORMATION
  Report Type: 
  Country: None (occurrence: None)
  Receive Date: 20080509
  Receipt Date: 20080430
  Transmission Date: 20081010
  Serious: Yes (Other)
  Sender: FDA-Public Use
  Company Number: US-PFIZER INC-2008037930

PATIENT
  Sex: Female

DRUGS (3)
  1. LIPITOR [Suspect]
  2. ZOLOFT [Suspect]
  3. NEURONTIN [Suspect]

REACTIONS (1)
  - BREAST CANCER [None]
